FAERS Safety Report 10354597 (Version 1)
Quarter: 2014Q3

REPORT INFORMATION
  Report Type: Spontaneous
  Country: CA (occurrence: CA)
  Receive Date: 20140731
  Receipt Date: 20140731
  Transmission Date: 20150326
  Serious: Yes (Hospitalization)
  Sender: FDA-Public Use
  Company Number: CA-ASTRAZENECA-2014SE53593

PATIENT
  Age: 66 Year
  Sex: Female
  Weight: 54.4 kg

DRUGS (2)
  1. HUMIRA [Suspect]
     Active Substance: ADALIMUMAB
     Route: 058
  2. ENTOCORT [Suspect]
     Active Substance: BUDESONIDE
     Route: 048

REACTIONS (6)
  - Vomiting [Unknown]
  - Cough [Unknown]
  - Kidney infection [Unknown]
  - Pyrexia [Unknown]
  - Chills [Unknown]
  - Pain [Unknown]
